FAERS Safety Report 8307054-0 (Version None)
Quarter: 2012Q2

REPORT INFORMATION
  Report Type: 
  Country: None (occurrence: None)
  Receive Date: 20120424
  Receipt Date: 20120419
  Transmission Date: 20120825
  Serious: Yes (Death, Hospitalization, Other)
  Sender: FDA-Public Use
  Company Number: US-ASTELLAS-2012US000273

PATIENT
  Age: 52 Year
  Sex: Female
  Weight: 44 kg

DRUGS (2)
  1. MK-2206 [Suspect]
     Indication: NON-SMALL CELL LUNG CANCER
     Dosage: 45 MG, QOD
     Route: 048
     Dates: start: 20110727, end: 20120410
  2. ERLOTINIB HYDROCHLORIDE [Suspect]
     Indication: NON-SMALL CELL LUNG CANCER STAGE IV
     Dosage: 150 MG, UID/QD
     Route: 048
     Dates: start: 20110727, end: 20120410

REACTIONS (4)
  - DEATH [None]
  - SKIN ULCER [None]
  - NEOPLASM MALIGNANT [None]
  - PULMONARY EMBOLISM [None]
